FAERS Safety Report 6100187-9 (Version None)
Quarter: 2009Q1

REPORT INFORMATION
  Report Type: 
  Country: None (occurrence: None)
  Receive Date: 20090303
  Receipt Date: 20090218
  Transmission Date: 20090719
  Serious: Yes (Other)
  Sender: FDA-Public Use
  Company Number: FR-ROCHE-615784

PATIENT
  Age: 80 Year
  Sex: Female

DRUGS (1)
  1. BONIVA [Suspect]
     Indication: DRUG USE FOR UNKNOWN INDICATION
     Dosage: THE PATIENT RECEIVED THE SECOND INJECTION IN NOVEMBER 2008, BUT SHE DID NOT RECEIVED THIRD INJECTION
     Route: 042

REACTIONS (1)
  - HALLUCINATION, VISUAL [None]
